FAERS Safety Report 21246515 (Version 2)
Quarter: 2022Q3

REPORT INFORMATION
  Report Type: Spontaneous
  Country: JP (occurrence: JP)
  Receive Date: 20220824
  Receipt Date: 20220905
  Transmission Date: 20221027
  Serious: Yes (Other)
  Sender: FDA-Public Use
  Company Number: JP-MSD-M2022-34329

PATIENT
  Age: 79 Year
  Sex: Male

DRUGS (10)
  1. LAGEVRIO [Suspect]
     Active Substance: MOLNUPIRAVIR
     Indication: COVID-19 treatment
     Dosage: 800 MILLIGRAM, BID
     Route: 048
     Dates: start: 20220817, end: 20220817
  2. BICALUTAMIDE [Concomitant]
     Active Substance: BICALUTAMIDE
     Indication: Prostate cancer
     Dosage: 80 MILLIGRAM, QD
     Route: 048
  3. NAFTOPIDIL [Concomitant]
     Active Substance: NAFTOPIDIL
     Indication: Benign prostatic hyperplasia
     Dosage: 75 MILLIGRAM, QD
     Route: 048
  4. DEXTROMETHORPHAN HYDROBROMIDE [Concomitant]
     Active Substance: DEXTROMETHORPHAN HYDROBROMIDE
     Indication: Cough
     Dosage: 15 MILLIGRAM, TID
     Route: 048
     Dates: start: 20220817, end: 20220820
  5. REBAMIPIDE [Concomitant]
     Active Substance: REBAMIPIDE
     Indication: Gastric disorder
     Dosage: 100 MILLIGRAM, TID
     Route: 048
     Dates: start: 20220817, end: 20220820
  6. CARBOCYSTEINE [Concomitant]
     Active Substance: CARBOCYSTEINE
     Indication: Productive cough
     Dosage: 500 MILLIGRAM, TID
     Route: 048
     Dates: start: 20220817, end: 20220820
  7. TRANEXAMIC ACID [Concomitant]
     Active Substance: TRANEXAMIC ACID
     Indication: Inflammation
     Dosage: 250 MILLIGRAM, TID
     Route: 048
     Dates: start: 20220817, end: 20220820
  8. AMLODIPINE\TELMISARTAN [Concomitant]
     Active Substance: AMLODIPINE\TELMISARTAN
     Indication: Hypertension
     Dosage: UNK
     Route: 048
  9. REPAGLINIDE [Concomitant]
     Active Substance: REPAGLINIDE
     Indication: Glycosuria
     Dosage: 0.5 MILLIGRAM, TID
     Route: 065
  10. ATORVASTATIN CALCIUM TRIHYDRATE [Concomitant]
     Active Substance: ATORVASTATIN CALCIUM TRIHYDRATE
     Indication: Lipids abnormal
     Dosage: 10 MILLIGRAM, QD
     Route: 065

REACTIONS (1)
  - Urinary retention [Recovered/Resolved]

NARRATIVE: CASE EVENT DATE: 20220818
